FAERS Safety Report 17223683 (Version 3)
Quarter: 2020Q1

REPORT INFORMATION
  Report Type: Report from Study
  Country: None (occurrence: US)
  Receive Date: 20200102
  Receipt Date: 20200225
  Transmission Date: 20200409
  Serious: Yes (Hospitalization, Disabling, Other)
  Sender: FDA-Public Use
  Company Number: US-ABBVIE-19K-163-3009712-00

PATIENT
  Sex: Male

DRUGS (1)
  1. HUMIRA [Suspect]
     Active Substance: ADALIMUMAB
     Indication: CROHN^S DISEASE
     Route: 058
     Dates: start: 2013

REACTIONS (8)
  - Osteoarthritis [Recovering/Resolving]
  - Crohn^s disease [Recovered/Resolved]
  - Knee arthroplasty [Unknown]
  - Crohn^s disease [Unknown]
  - Knee arthroplasty [Recovered/Resolved]
  - Abdominal hernia [Not Recovered/Not Resolved]
  - Scar pain [Not Recovered/Not Resolved]
  - Pain [Unknown]

NARRATIVE: CASE EVENT DATE: 2013
